FAERS Safety Report 21369702 (Version 1)
Quarter: 2022Q3

REPORT INFORMATION
  Report Type: Spontaneous
  Country: US (occurrence: US)
  Receive Date: 20220923
  Receipt Date: 20220923
  Transmission Date: 20221027
  Serious: No
  Sender: FDA-Public Use
  Company Number: US-GSK-US2022AMR132475

PATIENT
  Age: 37 Year
  Sex: Female

DRUGS (1)
  1. BENLYSTA [Suspect]
     Active Substance: BELIMUMAB
     Indication: Lupus nephritis
     Dosage: UNK
     Route: 058
     Dates: start: 20120101

REACTIONS (6)
  - Insomnia [Unknown]
  - Food intolerance [Unknown]
  - Arthralgia [Recovered/Resolved]
  - Hyperhidrosis [Recovered/Resolved]
  - Nervousness [Unknown]
  - Dairy intolerance [Recovered/Resolved]

NARRATIVE: CASE EVENT DATE: 20220912
